FAERS Safety Report 6921051-9 (Version None)
Quarter: 2010Q3

REPORT INFORMATION
  Report Type: 
  Country: None (occurrence: None)
  Receive Date: 20100812
  Receipt Date: 20100802
  Transmission Date: 20110219
  Serious: Yes (Hospitalization)
  Sender: FDA-Public Use
  Company Number: JP-ROCHE-709736

PATIENT
  Sex: Male
  Weight: 53 kg

DRUGS (17)
  1. AVASTIN [Suspect]
     Indication: COLON CANCER METASTATIC
     Route: 041
     Dates: start: 20081017, end: 20091009
  2. FLUOROURACIL [Concomitant]
     Dosage: ROUTE: INTRAVENOUS BOLUS
     Route: 042
     Dates: start: 20080904, end: 20081226
  3. FLUOROURACIL [Concomitant]
     Dosage: INTRAVENOUS DRIP
     Route: 042
     Dates: start: 20080904, end: 20081201
  4. FLUOROURACIL [Concomitant]
     Dosage: ROUTE: INTRAVENOUS BOLUS
     Route: 042
     Dates: start: 20090109, end: 20090430
  5. FLUOROURACIL [Concomitant]
     Dosage: ROUTE: INTRAVENOUS DRIP
     Route: 042
     Dates: start: 20090109, end: 20090101
  6. FLUOROURACIL [Concomitant]
     Dosage: ROUTE: INTRAVENOUS BOLUS
     Route: 042
     Dates: start: 20090213, end: 20090417
  7. FLUOROURACIL [Concomitant]
     Dosage: ROUTE: INTRAVENOUS DRIP
     Route: 042
     Dates: start: 20090213, end: 20090401
  8. FLUOROURACIL [Concomitant]
     Dosage: ROUTE: INTRAVENOUS BOLUS
     Route: 042
     Dates: start: 20090501, end: 20091009
  9. FLUOROURACIL [Concomitant]
     Dosage: ROUTE: INTRAVENOUS DRIP
     Route: 042
     Dates: start: 20090501, end: 20091001
  10. ISOVORIN [Concomitant]
     Route: 041
     Dates: start: 20080904, end: 20081226
  11. ISOVORIN [Concomitant]
     Route: 041
     Dates: start: 20090109, end: 20090130
  12. ISOVORIN [Concomitant]
     Route: 041
     Dates: start: 20090213, end: 20090417
  13. ISOVORIN [Concomitant]
     Route: 041
     Dates: start: 20090501, end: 20091009
  14. ELPLAT [Concomitant]
     Route: 042
     Dates: start: 20080904, end: 20081226
  15. TAKEPRON [Concomitant]
     Route: 048
     Dates: start: 20080903
  16. DECADRON [Concomitant]
     Route: 041
     Dates: start: 20080904, end: 20091009
  17. TOPOTECAN [Concomitant]
     Route: 041
     Dates: start: 20090213, end: 20090417

REACTIONS (2)
  - HYPERTENSION [None]
  - PERITONITIS [None]
